FAERS Safety Report 5796424-0 (Version None)
Quarter: 2008Q3

REPORT INFORMATION
  Report Type: 
  Country: None (occurrence: None)
  Receive Date: 20080701
  Receipt Date: 20080619
  Transmission Date: 20090109
  Serious: Yes (Hospitalization)
  Sender: FDA-Public Use
  Company Number: FR-AMGEN-UK273616

PATIENT
  Sex: Male

DRUGS (9)
  1. PANITUMUMAB [Suspect]
     Indication: SQUAMOUS CELL CARCINOMA
     Route: 042
     Dates: start: 20080303
  2. BICARBONATE [Concomitant]
     Route: 048
     Dates: start: 20080327
  3. NEUPOGEN [Concomitant]
     Route: 058
     Dates: start: 20080403, end: 20080403
  4. FORLAX [Concomitant]
     Route: 048
     Dates: start: 20080403
  5. OMEPRAZOLE [Concomitant]
     Dates: start: 20080403
  6. SOLU-MEDROL [Concomitant]
     Dates: start: 20080403, end: 20080407
  7. TRANXENE [Concomitant]
     Route: 048
     Dates: start: 20080404, end: 20080404
  8. MICROLAX [Concomitant]
     Dates: start: 20080406, end: 20080406
  9. MEGA LEAN [Concomitant]
     Route: 048
     Dates: start: 20080406, end: 20080406

REACTIONS (2)
  - APHAGIA [None]
  - WEIGHT DECREASED [None]
